FAERS Safety Report 12221035 (Version 2)
Quarter: 2016Q2

REPORT INFORMATION
  Report Type: Spontaneous
  Country: PT (occurrence: PT)
  Receive Date: 20160330
  Receipt Date: 20160418
  Transmission Date: 20160815
  Serious: Yes (Other)
  Sender: FDA-Public Use
  Company Number: PT-ACTAVIS-2016-06769

PATIENT
  Age: 54 Year
  Sex: Female
  Weight: 45 kg

DRUGS (6)
  1. ORADEXON [Concomitant]
     Active Substance: DEXAMETHASONE
     Indication: PROPHYLAXIS OF NAUSEA AND VOMITING
     Dosage: 20 MG, CYCLICAL
     Route: 042
     Dates: start: 20160307, end: 20160307
  2. OXALIPLATINA HOSPIRA [Concomitant]
     Indication: PANCREATIC CARCINOMA
     Dosage: 125 MG, CYCLICAL
     Route: 042
     Dates: start: 20160307, end: 20160307
  3. CALCIUM FOLINATE [Concomitant]
     Active Substance: LEUCOVORIN CALCIUM
     Indication: PANCREATIC CARCINOMA
     Dosage: 592 MG, CYCLICAL
     Route: 042
     Dates: start: 20160307, end: 20160307
  4. ONDANSETROM                        /00955301/ [Concomitant]
     Indication: PROPHYLAXIS OF NAUSEA AND VOMITING
     Dosage: 8 MG, CYCLICAL; 8 MG/2ML
     Route: 042
     Dates: start: 20160307, end: 20160307
  5. IRINOTECAN ACTAVIS [Suspect]
     Active Substance: IRINOTECAN
     Indication: PANCREATIC CARCINOMA
     Dosage: 265 MG, CYCLICAL (180MG/M2)
     Route: 042
     Dates: start: 20160307, end: 20160307
  6. LOVENOX [Concomitant]
     Active Substance: ENOXAPARIN SODIUM
     Indication: PROPHYLAXIS
     Dosage: 60 MG, DAILY
     Route: 058

REACTIONS (2)
  - Diarrhoea [Recovered/Resolved]
  - Language disorder [Recovered/Resolved]

NARRATIVE: CASE EVENT DATE: 20160307
